FAERS Safety Report 6962844-1 (Version None)
Quarter: 2010Q3

REPORT INFORMATION
  Report Type: 
  Country: None (occurrence: None)
  Receive Date: 20100823
  Receipt Date: 20100630
  Transmission Date: 20110219
  Serious: No
  Sender: FDA-Public Use
  Company Number: 013236

PATIENT
  Sex: Male
  Weight: 86 kg

DRUGS (8)
  1. CIMZIA [Suspect]
     Indication: CROHN'S DISEASE
     Dosage: SUBCUTANEOUS
     Route: 058
     Dates: start: 20100101
  2. CIMZIA [Suspect]
  3. TRAZODONE HCL [Concomitant]
  4. CITALOPRAM HYDROBROMIDE [Concomitant]
  5. DIAZEPAM [Concomitant]
  6. MULTI-VITAMINS [Concomitant]
  7. VITAMIN B-12 [Concomitant]
  8. PROVENTIL [Concomitant]

REACTIONS (2)
  - CROHN'S DISEASE [None]
  - FREQUENT BOWEL MOVEMENTS [None]
